FAERS Safety Report 16578541 (Version 1)
Quarter: 2019Q3

REPORT INFORMATION
  Report Type: Spontaneous
  Country: FR (occurrence: FR)
  Receive Date: 20190716
  Receipt Date: 20190716
  Transmission Date: 20191004
  Serious: Yes (Other)
  Sender: FDA-Public Use
  Company Number: FR-BRISTOL-MYERS SQUIBB COMPANY-BMS-2019-068340

PATIENT
  Age: 54 Year
  Sex: Male

DRUGS (2)
  1. ELIQUIS [Suspect]
     Active Substance: APIXABAN
     Indication: PRODUCT USED FOR UNKNOWN INDICATION
     Dosage: UNK
     Route: 048
     Dates: start: 201904
  2. INNOHEP [Suspect]
     Active Substance: TINZAPARIN SODIUM
     Indication: NEOPLASM MALIGNANT
     Dosage: 12000 INTERNATIONAL UNIT
     Route: 058
     Dates: start: 201808, end: 201904

REACTIONS (1)
  - Priapism [Recovered/Resolved with Sequelae]

NARRATIVE: CASE EVENT DATE: 20190409
